FAERS Safety Report 5720727-9 (Version None)
Quarter: 2008Q2

REPORT INFORMATION
  Report Type: 
  Country: None (occurrence: None)
  Receive Date: 20080429
  Receipt Date: 20080422
  Transmission Date: 20081010
  Serious: Yes (Other)
  Sender: FDA-Public Use
  Company Number: US-ALLERGAN-0804753US

PATIENT
  Sex: Female

DRUGS (1)
  1. REFRESH PLUS [Suspect]
     Indication: DRY EYE
     Route: 047

REACTIONS (3)
  - CELLULITIS ORBITAL [None]
  - EXPIRED DRUG ADMINISTERED [None]
  - OCULAR HYPERAEMIA [None]
